FAERS Safety Report 21666445 (Version 1)
Quarter: 2022Q4

REPORT INFORMATION
  Report Type: Report from Study
  Country: ES (occurrence: ES)
  Receive Date: 20221201
  Receipt Date: 20221201
  Transmission Date: 20230112
  Serious: Yes (Death)
  Sender: FDA-Public Use
  Company Number: ES-JNJFOC-20220560465

PATIENT
  Age: 75 Year
  Sex: Male
  Weight: 69 kg

DRUGS (10)
  1. DARATUMUMAB [Suspect]
     Active Substance: DARATUMUMAB
     Indication: Plasma cell myeloma
     Dosage: DATE OF LAST ADMINISTRATION OF DRUG : 27/JAN/2021
     Route: 042
     Dates: start: 20201023, end: 20210127
  2. DARATUMUMAB [Suspect]
     Active Substance: DARATUMUMAB
     Indication: Plasma cell myeloma
     Dosage: LAST DOSE PRIOR TO SAE 27-APR-2022
     Route: 058
     Dates: start: 20210126, end: 20220427
  3. MELPHALAN [Suspect]
     Active Substance: MELPHALAN
     Indication: Plasma cell myeloma
     Dosage: 4 DAYS?DATE OF LAST ADMINISTRATION OF DRUG : 01/DEC/2019
     Route: 048
     Dates: start: 20190405, end: 20191201
  4. BORTEZOMIB [Suspect]
     Active Substance: BORTEZOMIB
     Indication: Plasma cell myeloma
     Dosage: DATE OF LAST ADMINISTRATION OF DRUG : 27/NOV/2019
     Route: 058
     Dates: start: 20190405, end: 20191127
  5. PREDNISONE [Suspect]
     Active Substance: PREDNISONE
     Indication: Plasma cell myeloma
     Route: 048
     Dates: start: 20190403
  6. PREDNISONE [Suspect]
     Active Substance: PREDNISONE
     Indication: Prophylaxis
     Dosage: DATE OF LAST ADMINISTRATION OF DRUG : 01/DEC/2019
     Route: 048
     Dates: start: 20190405, end: 20191201
  7. TAMSULOSIN [Concomitant]
     Active Substance: TAMSULOSIN
     Indication: Benign prostatic hyperplasia
     Dosage: 500/400UG
     Route: 048
     Dates: start: 20170421
  8. OMEPRAZOLE [Concomitant]
     Active Substance: OMEPRAZOLE
     Indication: Prophylaxis
     Route: 048
     Dates: start: 20190321
  9. ENALAPRIL [Concomitant]
     Active Substance: ENALAPRIL
     Indication: Hypertension
     Dosage: 20MG/12 HOUR
     Route: 048
     Dates: start: 20160801
  10. ACYCLOVIR [Concomitant]
     Active Substance: ACYCLOVIR
     Indication: Prophylaxis
     Route: 048
     Dates: start: 20190321

REACTIONS (1)
  - Acute myeloid leukaemia [Fatal]

NARRATIVE: CASE EVENT DATE: 20220527
